FAERS Safety Report 9560398 (Version 1)
Quarter: 2013Q3

REPORT INFORMATION
  Report Type: Spontaneous
  Country: DE (occurrence: DE)
  Receive Date: 20130927
  Receipt Date: 20130927
  Transmission Date: 20140515
  Serious: Yes (Other)
  Sender: FDA-Public Use
  Company Number: DE-BAYER-2013-113044

PATIENT
  Age: 15 Year
  Sex: Male

DRUGS (10)
  1. CIPROBAY [Suspect]
     Indication: BOVINE TUBERCULOSIS
     Route: 048
  2. CLARITHROMYCIN [Suspect]
     Indication: BOVINE TUBERCULOSIS
     Route: 048
  3. ETHIONAMIDE [Suspect]
     Indication: BOVINE TUBERCULOSIS
     Route: 048
  4. RIFABUTIN [Suspect]
     Indication: BOVINE TUBERCULOSIS
     Route: 048
  5. AMOXI-CLAVULANICO [Suspect]
     Indication: BOVINE TUBERCULOSIS
     Route: 048
  6. STREPTOMYCIN [Suspect]
     Indication: BOVINE TUBERCULOSIS
     Route: 030
  7. OFLOXACIN [Suspect]
     Indication: BOVINE TUBERCULOSIS
     Route: 048
  8. LINEZOLID [Suspect]
     Indication: BOVINE TUBERCULOSIS
     Route: 048
  9. INTERFERON GAMMA [Suspect]
     Indication: BOVINE TUBERCULOSIS
     Route: 058
  10. CLOFAZIMINE [Suspect]
     Indication: BOVINE TUBERCULOSIS
     Route: 048

REACTIONS (9)
  - Chest wall mass [Not Recovered/Not Resolved]
  - Enteritis [Not Recovered/Not Resolved]
  - Gastritis [Not Recovered/Not Resolved]
  - General physical health deterioration [Not Recovered/Not Resolved]
  - Helicobacter infection [Not Recovered/Not Resolved]
  - Neuropathy peripheral [Not Recovered/Not Resolved]
  - Optic neuropathy [Not Recovered/Not Resolved]
  - Respiratory failure [Not Recovered/Not Resolved]
  - Steatorrhoea [Not Recovered/Not Resolved]
